FAERS Safety Report 18107138 (Version 1)
Quarter: 2020Q3

REPORT INFORMATION
  Report Type: Spontaneous
  Country: US (occurrence: US)
  Receive Date: 20200803
  Receipt Date: 20200803
  Transmission Date: 20201103
  Serious: Yes (Death)
  Sender: FDA-Public Use
  Company Number: None

PATIENT
  Age: 84 Year
  Sex: Female
  Weight: 48.5 kg

DRUGS (22)
  1. RENVELA 2.4G [Concomitant]
     Dates: start: 20200718, end: 20200730
  2. NIFEDIPINE 30MG [Concomitant]
     Active Substance: NIFEDIPINE
     Dates: start: 20200719, end: 20200730
  3. FENTANYL IV 25 MCG [Concomitant]
     Dates: start: 20200718, end: 20200730
  4. APAP 500MG PO LIQUID [Concomitant]
     Dates: start: 20200718, end: 20200730
  5. CINACALCET 30MG [Concomitant]
     Active Substance: CINACALCET
     Dates: start: 20200718, end: 20200730
  6. SENNA [Concomitant]
     Active Substance: SENNA LEAF\SENNOSIDES\SENNOSIDES A AND B
     Dates: start: 20200723, end: 20200728
  7. DILAUDID 0.5MG IV [Concomitant]
     Dates: start: 20200718, end: 20200726
  8. LIDOCAINE 5% PATCH [Concomitant]
     Active Substance: LIDOCAINE
     Dates: start: 20200718, end: 20200730
  9. ARANESP [Concomitant]
     Active Substance: DARBEPOETIN ALFA
     Dates: start: 20200719, end: 20200730
  10. ISOVUE 300 [Concomitant]
     Active Substance: IOPAMIDOL
     Dates: start: 20200722, end: 20200722
  11. METOPROLOL TARTRATE. [Suspect]
     Active Substance: METOPROLOL TARTRATE
     Indication: ATRIAL FIBRILLATION
     Route: 048
     Dates: start: 20200727, end: 20200727
  12. HEPARIN 5000 UNITS TID [Concomitant]
     Dates: start: 20200718, end: 20200727
  13. ATORVASTATIN 40MG [Concomitant]
     Active Substance: ATORVASTATIN
     Dates: start: 20200722, end: 20200730
  14. PAXIL [Concomitant]
     Active Substance: PAROXETINE HYDROCHLORIDE
     Dates: start: 20200718, end: 20200730
  15. CALCITRIOL 0.25MCG [Concomitant]
     Dates: start: 20200718, end: 20200730
  16. TIGAN IM 200MG + PO 300MG [Concomitant]
     Dates: start: 20200725, end: 20200725
  17. MIRALAX 17G [Concomitant]
     Dates: start: 20200719, end: 20200730
  18. OMEPRAZOLE 20MG [Concomitant]
     Active Substance: OMEPRAZOLE
     Dates: start: 20200719, end: 20200728
  19. DIANEAL PD LOW CALCIUM W/ 1.5% DEXTROSE [Concomitant]
     Dates: start: 20200718, end: 20200729
  20. NEPHRO VITE RX [Concomitant]
     Active Substance: ASCORBIC ACID\BIOTIN\CALCIUM PANTOTHENATE\CYANOCOBALAMIN\FOLIC ACID\NIACINAMIDE\PYRIDOXINE HYDROCHLORIDE\RIBOFLAVIN\THIAMINE MONONITRATE
     Dates: start: 20200719, end: 20200730
  21. ZOLPIDEM 12.5MG [Concomitant]
     Active Substance: ZOLPIDEM TARTRATE
     Dates: start: 20200719, end: 20200730
  22. ROPINEROLE 2MG [Concomitant]
     Dates: start: 20200718, end: 20200730

REACTIONS (6)
  - Cardiogenic shock [None]
  - Poor peripheral circulation [None]
  - Acidosis [None]
  - Bradycardia [None]
  - Blood lactic acid increased [None]
  - Hypotension [None]

NARRATIVE: CASE EVENT DATE: 20200727
